FAERS Safety Report 17602341 (Version 1)
Quarter: 2020Q1

REPORT INFORMATION
  Report Type: Spontaneous
  Country: FI (occurrence: FI)
  Receive Date: 20200330
  Receipt Date: 20200330
  Transmission Date: 20200409
  Serious: Yes (Hospitalization)
  Sender: FDA-Public Use
  Company Number: FI-EXELIXIS-CABO-20028474

PATIENT
  Age: 75 Year
  Sex: Male
  Weight: 74 kg

DRUGS (9)
  1. TAMSUMIN [Concomitant]
     Active Substance: TAMSULOSIN
  2. CABOMETYX [Suspect]
     Active Substance: CABOZANTINIB S-MALATE
     Indication: RENAL CELL CARCINOMA
     Dosage: UNK
     Dates: start: 20200309
  3. IPILIMUMAB [Suspect]
     Active Substance: IPILIMUMAB
     Dosage: 1 MG/KG, Q2WEEKS
     Route: 042
     Dates: start: 20191218, end: 20200205
  4. DIOVAN [Concomitant]
     Active Substance: VALSARTAN
  5. TRILEPTAL [Concomitant]
     Active Substance: OXCARBAZEPINE
  6. PREDNISOLON [Concomitant]
     Active Substance: PREDNISOLONE
  7. IMOCUR [Concomitant]
  8. SOMALGEN [Concomitant]
     Dosage: UNK
     Dates: start: 20200309
  9. NIVOLUMAB [Suspect]
     Active Substance: NIVOLUMAB
     Dosage: 3 MG/KG, Q3WEEKS
     Route: 042
     Dates: start: 20191218, end: 20200205

REACTIONS (2)
  - Diarrhoea [Recovered/Resolved]
  - Colitis [Recovered/Resolved]

NARRATIVE: CASE EVENT DATE: 20200313
